FAERS Safety Report 18521088 (Version 1)
Quarter: 2020Q4

REPORT INFORMATION
  Report Type: Report from Study
  Country: MX (occurrence: MX)
  Receive Date: 20201119
  Receipt Date: 20201119
  Transmission Date: 20210114
  Serious: Yes (Other)
  Sender: FDA-Public Use
  Company Number: MX-UCBSA-2020046118

PATIENT
  Sex: Male
  Weight: 80 kg

DRUGS (5)
  1. EPAMIN [PHENYTOIN SODIUM] [Concomitant]
     Indication: EPILEPSY
  2. TOPAMAX [Concomitant]
     Active Substance: TOPIRAMATE
     Indication: EPILEPSY
  3. BRIVARACETAM [Suspect]
     Active Substance: BRIVARACETAM
     Indication: EPILEPSY
     Dosage: 100 MILLIGRAM, 3X/DAY (TID)
     Route: 048
     Dates: start: 2020
  4. VIMPAT [Suspect]
     Active Substance: LACOSAMIDE
     Indication: EPILEPSY
     Dosage: 200 MILLIGRAM, 2X/DAY (BID)
     Dates: start: 2015
  5. KRIADEX [Concomitant]
     Indication: EPILEPSY

REACTIONS (3)
  - Surgery [Unknown]
  - Overdose [Unknown]
  - Off label use [Unknown]

NARRATIVE: CASE EVENT DATE: 2017
